FAERS Safety Report 18780431 (Version 1)
Quarter: 2021Q1

REPORT INFORMATION
  Report Type: Report from Study
  Country: JP (occurrence: JP)
  Receive Date: 20210125
  Receipt Date: 20210125
  Transmission Date: 20210419
  Serious: Yes (Death)
  Sender: FDA-Public Use
  Company Number: JP-PFIZER INC-2021045047

PATIENT

DRUGS (2)
  1. BEVACIZUMAB. [Suspect]
     Active Substance: BEVACIZUMAB
     Indication: BREAST CANCER METASTATIC
     Dosage: 10 MG/KG GIVEN EVERY 2 WEEKS
  2. PACLITAXEL. [Suspect]
     Active Substance: PACLITAXEL
     Indication: BREAST CANCER METASTATIC
     Dosage: 90 MG/M2, WEEKLY (FOR 3 WEEKS, FOLLOWED BY A 1?WEEK REST)

REACTIONS (2)
  - Cardiac failure [Fatal]
  - Gastroenteritis [Fatal]
